FAERS Safety Report 19693782 (Version 2)
Quarter: 2021Q3

REPORT INFORMATION
  Report Type: Report from Study
  Country: US (occurrence: US)
  Receive Date: 20210812
  Receipt Date: 20210903
  Transmission Date: 20211014
  Serious: Yes (Other)
  Sender: FDA-Public Use
  Company Number: US-HORIZON THERAPEUTICS-HZN-2021-005494

PATIENT

DRUGS (1)
  1. KRYSTEXXA [Suspect]
     Active Substance: PEGLOTICASE
     Indication: GOUT
     Dosage: 8 MG
     Route: 042
     Dates: start: 20210730

REACTIONS (7)
  - Gout [Recovering/Resolving]
  - Visual impairment [Recovered/Resolved]
  - Limb discomfort [Recovering/Resolving]
  - Vitreous floaters [Recovered/Resolved]
  - Gait disturbance [Recovering/Resolving]
  - Blood glucose increased [Recovered/Resolved]
  - Swelling face [Recovered/Resolved]

NARRATIVE: CASE EVENT DATE: 20210730
